FAERS Safety Report 10779986 (Version 4)
Quarter: 2015Q2

REPORT INFORMATION
  Report Type: Spontaneous
  Country: IT (occurrence: IT)
  Receive Date: 20150210
  Receipt Date: 20150630
  Transmission Date: 20150821
  Serious: Yes (Hospitalization)
  Sender: FDA-Public Use
  Company Number: CHPA2015IT001593

PATIENT
  Age: 44 Year
  Sex: Male

DRUGS (2)
  1. AMOXICILLIN/CLAVULANIC ACID [Suspect]
     Active Substance: AMOXICILLIN\CLAVULANIC ACID
     Indication: PHARYNGITIS
     Dosage: 2 G, QD
     Route: 048
     Dates: start: 20150103, end: 20150110
  2. IBUPROFEN. [Suspect]
     Active Substance: IBUPROFEN
     Indication: PHARYNGITIS
     Dosage: 600 MG, BID
     Route: 048
     Dates: start: 20150103, end: 20150110

REACTIONS (2)
  - Myalgia [Unknown]
  - Cholestasis [Unknown]

NARRATIVE: CASE EVENT DATE: 20150110
